FAERS Safety Report 5508909-2 (Version None)
Quarter: 2007Q4

REPORT INFORMATION
  Report Type: 
  Country: None (occurrence: None)
  Receive Date: 20071107
  Receipt Date: 20071031
  Transmission Date: 20080405
  Serious: Yes (Death, Hospitalization)
  Sender: FDA-Public Use
  Company Number: JP-ROCHE-522346

PATIENT
  Age: 78 Year
  Sex: Male

DRUGS (6)
  1. TICLOPIDINE HCL [Suspect]
     Indication: STENT PLACEMENT
     Dosage: OTHER INDICATION: ANGINA PECTORIS
     Route: 048
     Dates: start: 20070827, end: 20070910
  2. ASPIRIN [Concomitant]
     Indication: ANGINA PECTORIS
     Dosage: OTHER INDICATION: CEREBRAL INFARCTION
     Dates: end: 20070910
  3. VASOLAN [Concomitant]
     Dates: start: 20070825, end: 20070921
  4. ALASENN [Concomitant]
     Indication: CONSTIPATION
     Dates: end: 20070921
  5. FAMOTIDINE [Concomitant]
     Dates: end: 20070913
  6. ASPENONE [Concomitant]
     Indication: ARRHYTHMIA
     Dates: start: 20070823

REACTIONS (3)
  - ACUTE RESPIRATORY FAILURE [None]
  - PNEUMONIA [None]
  - PULMONARY ALVEOLAR HAEMORRHAGE [None]
